FAERS Safety Report 9502985 (Version 1)
Quarter: 2013Q3

REPORT INFORMATION
  Report Type: Spontaneous
  Country: CN (occurrence: CN)
  Receive Date: 20130906
  Receipt Date: 20130906
  Transmission Date: 20140515
  Serious: Yes (Other)
  Sender: FDA-Public Use
  Company Number: CN-ASTELLAS-2013JP009149

PATIENT
  Age: 21 Year
  Sex: Female

DRUGS (5)
  1. PROGRAF [Suspect]
     Dosage: 5 MG, UNKNOWN/D
     Route: 065
  2. PROGRAF [Suspect]
     Dosage: 3 MG, UNKNOWN/D
     Route: 065
  3. MYCOPHENOLATE MOFETIL [Concomitant]
     Dosage: UNK
     Route: 048
  4. HORMONES [Concomitant]
     Dosage: UNK
     Route: 065
  5. ANTIHYPERTENSIVES [Concomitant]
     Route: 065

REACTIONS (6)
  - Drug ineffective [Unknown]
  - Transplant rejection [Unknown]
  - Blood creatinine increased [Unknown]
  - Blood pressure increased [Unknown]
  - Tremor [Unknown]
  - Kidney enlargement [Unknown]
